FAERS Safety Report 5217115-0 (Version None)
Quarter: 2007Q1

REPORT INFORMATION
  Report Type: 
  Country: None (occurrence: None)
  Receive Date: 20070124
  Receipt Date: 20070122
  Transmission Date: 20070707
  Serious: Yes (Hospitalization)
  Sender: FDA-Public Use
  Company Number: US-GLAXOSMITHKLINE-A0511768A

PATIENT
  Age: 63 Year
  Sex: Female

DRUGS (2)
  1. SEREVENT [Suspect]
     Indication: EMPHYSEMA
     Route: 065
     Dates: start: 20010601
  2. COMBIVENT [Concomitant]

REACTIONS (4)
  - ADVERSE EVENT [None]
  - ASTHMA [None]
  - EMPHYSEMA [None]
  - LOSS OF CONSCIOUSNESS [None]
